FAERS Safety Report 13337620 (Version 2)
Quarter: 2017Q1

REPORT INFORMATION
  Report Type: Report from Study
  Country: CL (occurrence: CL)
  Receive Date: 20170315
  Receipt Date: 20170317
  Transmission Date: 20170428
  Serious: Yes (Death, Other)
  Sender: FDA-Public Use
  Company Number: PHHY2017CL039377

PATIENT
  Sex: Male

DRUGS (1)
  1. GLIVEC [Suspect]
     Active Substance: IMATINIB MESYLATE
     Indication: ACUTE LYMPHOCYTIC LEUKAEMIA
     Dosage: 600 MG, UNK
     Route: 065

REACTIONS (5)
  - Anal infection [Fatal]
  - Febrile neutropenia [Fatal]
  - Necrotising fasciitis [Fatal]
  - Acute lymphocytic leukaemia recurrent [Recovering/Resolving]
  - Genital infection [Fatal]
